FAERS Safety Report 13640124 (Version 1)
Quarter: 2017Q2

REPORT INFORMATION
  Report Type: Spontaneous
  Country: US (occurrence: US)
  Receive Date: 20170609
  Receipt Date: 20170609
  Transmission Date: 20170830
  Serious: No
  Sender: FDA-Public Use
  Company Number: US-ROCHE-1372453

PATIENT
  Sex: Female

DRUGS (21)
  1. KLONOPIN [Suspect]
     Active Substance: CLONAZEPAM
     Indication: PRODUCT USED FOR UNKNOWN INDICATION
     Route: 065
  2. TERCONAZOLE CREAM [Concomitant]
  3. CALAN [Concomitant]
     Active Substance: VERAPAMIL HYDROCHLORIDE
  4. SYNTHROID [Concomitant]
     Active Substance: LEVOTHYROXINE SODIUM
  5. AMOXIL [Concomitant]
     Active Substance: AMOXICILLIN
     Route: 065
  6. NYSTATIN. [Concomitant]
     Active Substance: NYSTATIN
     Route: 048
  7. CEFPODOXIME [Concomitant]
     Active Substance: CEFPODOXIME
  8. BUDESONIDE. [Concomitant]
     Active Substance: BUDESONIDE
  9. METFORMIN [Concomitant]
     Active Substance: METFORMIN HYDROCHLORIDE
     Route: 065
  10. RHINOCORT AQUA [Concomitant]
     Active Substance: BUDESONIDE
  11. CICLOPIROX. [Concomitant]
     Active Substance: CICLOPIROX
  12. BETAMETHASONE. [Concomitant]
     Active Substance: BETAMETHASONE
     Route: 065
  13. FUROSEMIDE. [Concomitant]
     Active Substance: FUROSEMIDE
  14. BORON [Concomitant]
     Active Substance: BORON
  15. SKELAXIN [Concomitant]
     Active Substance: METAXALONE
     Dosage: 5 TABLETS TWICE DAILY AS REQUIRED
     Route: 065
  16. OXYCODONE [Concomitant]
     Active Substance: OXYCODONE
  17. BISOPROLOL [Concomitant]
     Active Substance: BISOPROLOL
  18. PREDNISONE. [Concomitant]
     Active Substance: PREDNISONE
  19. TOBRAMYCIN. [Concomitant]
     Active Substance: TOBRAMYCIN
  20. GAMASTAN [Concomitant]
     Active Substance: HUMAN IMMUNOGLOBULIN G
  21. ALPRAZOLAM. [Concomitant]
     Active Substance: ALPRAZOLAM

REACTIONS (5)
  - Chronic sinusitis [Unknown]
  - Epstein-Barr virus test positive [Unknown]
  - Increased tendency to bruise [Unknown]
  - Cellulitis [Unknown]
  - Fibromyalgia [Unknown]
